FAERS Safety Report 4385084-1 (Version None)
Quarter: 2004Q2

REPORT INFORMATION
  Report Type: 
  Country: None (occurrence: None)
  Receive Date: 20040624
  Receipt Date: 20040624
  Transmission Date: 20050107
  Serious: Yes (Other)
  Sender: FDA-Public Use
  Company Number: None

PATIENT
  Age: 2 Year
  Sex: Male
  Weight: 12.7007 kg

DRUGS (1)
  1. NASONEX [Suspect]
     Indication: RHINITIS ALLERGIC
     Dosage: 1 PUFF EACH NOSTR NASAL
     Route: 045
     Dates: start: 20040501, end: 20040601

REACTIONS (2)
  - AGGRESSION [None]
  - IRRITABILITY [None]
